FAERS Safety Report 9189266 (Version 1)
Quarter: 2013Q1

REPORT INFORMATION
  Report Type: Spontaneous
  Country: US (occurrence: None)
  Receive Date: 20130321
  Receipt Date: 20130321
  Transmission Date: 20140127
  Serious: Yes (Other)
  Sender: FDA-Public Use
  Company Number: None

PATIENT
  Age: 61 Year
  Sex: Female

DRUGS (1)
  1. ENBREL [Suspect]
     Indication: RHEUMATOID ARTHRITIS
     Dosage: 50MG/ML  WEEKLY  SQ
     Route: 058
     Dates: start: 20120425, end: 20130218

REACTIONS (5)
  - Influenza like illness [None]
  - Pain [None]
  - Pyrexia [None]
  - Chills [None]
  - Headache [None]
